FAERS Safety Report 4996388-3 (Version None)
Quarter: 2006Q2

REPORT INFORMATION
  Report Type: 
  Country: None (occurrence: None)
  Receive Date: 20060509
  Receipt Date: 20060427
  Transmission Date: 20061013
  Serious: Yes (Hospitalization)
  Sender: FDA-Public Use
  Company Number: US-JNJFOC-20030904433

PATIENT
  Sex: Female
  Weight: 86.64 kg

DRUGS (13)
  1. RISPERDAL [Suspect]
     Route: 048
  2. RISPERDAL [Suspect]
     Indication: BIPOLAR DISORDER
     Route: 048
  3. ALBUTEROL SULFATE AUTOHALER [Concomitant]
     Dosage: AS DIRECTED
     Route: 055
  4. ALBUTEROL SULFATE AUTOHALER [Concomitant]
     Dosage: AS NEEDED
     Route: 055
  5. DOXEPIN [Concomitant]
     Route: 065
  6. DOXEPIN [Concomitant]
     Dosage: 1 IN THE MORNING AND 2 AT NIGHT
     Route: 065
  7. EFFEXOR XR [Concomitant]
     Route: 065
  8. DARVOCET-N 100 [Concomitant]
     Route: 065
  9. DARVOCET-N 100 [Concomitant]
     Dosage: AS NEEDED
     Route: 065
  10. NAPROXEN [Concomitant]
  11. ADVAIR DISKUS 100/50 [Concomitant]
  12. ADVAIR DISKUS 100/50 [Concomitant]
  13. ENBREL [Concomitant]
     Indication: RHEUMATOID ARTHRITIS
     Route: 058

REACTIONS (8)
  - ABDOMINAL HERNIA [None]
  - ASTHMA [None]
  - CATARACT OPERATION [None]
  - DERMAL CYST [None]
  - HEPATIC CIRRHOSIS [None]
  - PAIN IN EXTREMITY [None]
  - PNEUMONIA [None]
  - RHEUMATOID ARTHRITIS [None]
